FAERS Safety Report 17455238 (Version 2)
Quarter: 2020Q2

REPORT INFORMATION
  Report Type: Spontaneous
  Country: RU (occurrence: RU)
  Receive Date: 20200225
  Receipt Date: 20200402
  Transmission Date: 20200713
  Serious: Yes (Hospitalization, Other)
  Sender: FDA-Public Use
  Company Number: RU-TEVA-2020-RU-1190619

PATIENT
  Age: 5 Year
  Sex: Female

DRUGS (1)
  1. VINCRISTINE-TEVA [Suspect]
     Active Substance: VINCRISTINE
     Route: 065

REACTIONS (4)
  - Stupor [Unknown]
  - Pain [Unknown]
  - Speech disorder [Not Recovered/Not Resolved]
  - Toxic encephalopathy [Unknown]
